FAERS Safety Report 25141441 (Version 1)
Quarter: 2025Q1

REPORT INFORMATION
  Report Type: Spontaneous
  Country: BR (occurrence: BR)
  Receive Date: 20250331
  Receipt Date: 20250331
  Transmission Date: 20250408
  Serious: Yes (Other)
  Sender: SANOFI AVENTIS
  Company Number: BR-SANOFI-02458112

PATIENT
  Age: 27 Year
  Sex: Male

DRUGS (4)
  1. THYMOGLOBULINE [Suspect]
     Active Substance: LAPINE T-LYMPHOCYTE IMMUNE GLOBULIN
     Indication: Prophylaxis against transplant rejection
     Dosage: 250 MG, QD
     Route: 065
     Dates: start: 20250205, end: 20250205
  2. HYDROCORTISONE [Concomitant]
     Active Substance: HYDROCORTISONE
     Dosage: 30 MG, QD
     Route: 042
     Dates: start: 20250205, end: 20250205
  3. CEFAZOLIN [Concomitant]
     Active Substance: CEFAZOLIN
     Dosage: 1 G, Q8H
     Route: 042
     Dates: start: 20250205, end: 20250206
  4. METAMIZOLE SODIUM [Concomitant]
     Active Substance: METAMIZOLE SODIUM
     Dosage: 1 G, Q6H
     Route: 042
     Dates: start: 20250205, end: 20250206

REACTIONS (5)
  - Respiratory distress [Recovered/Resolved]
  - Cough [Recovered/Resolved]
  - Bronchospasm [Recovered/Resolved]
  - Oxygen saturation decreased [Recovered/Resolved]
  - Chills [Recovered/Resolved]

NARRATIVE: CASE EVENT DATE: 20250205
